FAERS Safety Report 8998612 (Version 1)
Quarter: 2013Q1

REPORT INFORMATION
  Report Type: Spontaneous
  Country: US (occurrence: US)
  Receive Date: 20130103
  Receipt Date: 20130103
  Transmission Date: 20140127
  Serious: No
  Sender: FDA-Public Use
  Company Number: US-009507513-1212USA008803

PATIENT
  Sex: Female

DRUGS (4)
  1. PEGINTRON [Suspect]
     Indication: HEPATITIS C
     Dosage: 120 MICROGRAM, QW
     Dates: start: 20120916
  2. TELAPREVIR [Suspect]
  3. ALBUTEROL [Concomitant]
  4. DEPO-PROVERA [Concomitant]

REACTIONS (7)
  - Skin disorder [Recovering/Resolving]
  - Rash [Recovering/Resolving]
  - Injection site reaction [Recovering/Resolving]
  - Dry skin [Recovering/Resolving]
  - Skin discolouration [Recovering/Resolving]
  - Skin exfoliation [Recovering/Resolving]
  - Depressed mood [Recovering/Resolving]
